FAERS Safety Report 15121060 (Version 2)
Quarter: 2019Q2

REPORT INFORMATION
  Report Type: Spontaneous
  Country: US (occurrence: US)
  Receive Date: 20180709
  Receipt Date: 20190606
  Transmission Date: 20190711
  Serious: Yes (Other)
  Sender: FDA-Public Use
  Company Number: US-SA-2018SA000595

PATIENT
  Age: 52 Year
  Sex: Female
  Weight: 99.33 kg

DRUGS (7)
  1. LISINOPRIL AND HYDROCHLOROTHIAZIDE [Concomitant]
     Active Substance: HYDROCHLOROTHIAZIDE\LISINOPRIL
     Route: 065
  2. TAXOTERE [Suspect]
     Active Substance: DOCETAXEL
     Indication: BREAST CANCER FEMALE
     Dosage: UNK UNK, UNK
     Route: 042
     Dates: start: 20130313, end: 20130313
  3. LISINOPRIL. [Concomitant]
     Active Substance: LISINOPRIL
  4. REGLAN [Concomitant]
     Active Substance: METOCLOPRAMIDE HYDROCHLORIDE
     Dosage: AS NEEDED 30 MG DAILY
  5. PARAPLATIN [Concomitant]
     Active Substance: CARBOPLATIN
  6. HERCEPTIN [Concomitant]
     Active Substance: TRASTUZUMAB
  7. MOTRIN [Concomitant]
     Active Substance: IBUPROFEN
     Dosage: UNK UNK, PRN

REACTIONS (6)
  - Anxiety [Unknown]
  - Psychological trauma [Unknown]
  - Alopecia [Recovering/Resolving]
  - Pain [Unknown]
  - Impaired quality of life [Unknown]
  - Emotional distress [Unknown]
